FAERS Safety Report 7615620-0 (Version None)
Quarter: 2011Q3

REPORT INFORMATION
  Report Type: 
  Country: None (occurrence: None)
  Receive Date: 20110711
  Receipt Date: 20110613
  Transmission Date: 20111222
  Serious: Yes (Hospitalization)
  Sender: FDA-Public Use
  Company Number: 15231202

PATIENT
  Age: 80 Year
  Sex: Male

DRUGS (8)
  1. WARFARIN SODIUM [Suspect]
     Indication: THROMBOSIS PROPHYLAXIS
     Dosage: 2 MILLIGRAM 1 DAY
     Route: 048
     Dates: start: 20080319
  2. DARIFENACIN HYDROBROMIDE [Concomitant]
  3. SPIRONOLACTONE [Concomitant]
  4. ENALAPRIL MALEATE [Concomitant]
  5. FUROSEMIDE [Concomitant]
  6. MELOXICAM [Concomitant]
  7. PLACEBO [Suspect]
     Indication: THROMBOSIS PROPHYLAXIS
     Route: 048
     Dates: start: 20080319
  8. GLUCOSAMINE (GLUCOSAMINE) [Concomitant]

REACTIONS (2)
  - SYNCOPE [None]
  - DIABETES MELLITUS [None]
